FAERS Safety Report 5724607-4 (Version None)
Quarter: 2008Q2

REPORT INFORMATION
  Report Type: 
  Country: None (occurrence: None)
  Receive Date: 20080430
  Receipt Date: 20080430
  Transmission Date: 20081010
  Serious: Yes (Other)
  Sender: FDA-Public Use
  Company Number: None

PATIENT
  Age: 48 Year
  Sex: Male
  Weight: 61.3 kg

DRUGS (5)
  1. AMBISOME [Suspect]
     Indication: MENINGITIS CRYPTOCOCCAL
     Dosage: 300 MG IV Q24
     Route: 042
     Dates: start: 20080219
  2. RISPERIDONE [Concomitant]
  3. DOCUSATE SODIUM [Concomitant]
  4. FLUCYTOSINE [Concomitant]
  5. VORICONAZOLE [Concomitant]

REACTIONS (2)
  - HAEMATOCRIT DECREASED [None]
  - HAEMOGLOBIN DECREASED [None]
